FAERS Safety Report 6735485-9 (Version None)
Quarter: 2010Q2

REPORT INFORMATION
  Report Type: 
  Country: None (occurrence: None)
  Receive Date: 20100521
  Receipt Date: 20100517
  Transmission Date: 20101027
  Serious: Yes (Other)
  Sender: FDA-Public Use
  Company Number: US-BRISTOL-MYERS SQUIBB COMPANY-15109135

PATIENT
  Age: 45 Year
  Sex: Male

DRUGS (1)
  1. ONGLYZA [Suspect]
     Dates: start: 20100425

REACTIONS (2)
  - CARDIAC FAILURE [None]
  - HYPERTENSION [None]
